FAERS Safety Report 7232085-1 (Version None)
Quarter: 2011Q1

REPORT INFORMATION
  Report Type: 
  Country: None (occurrence: None)
  Receive Date: 20110118
  Receipt Date: 20110107
  Transmission Date: 20110831
  Serious: Yes (Death, Hospitalization)
  Sender: FDA-Public Use
  Company Number: HR-ELI_LILLY_AND_COMPANY-HR201101001136

PATIENT
  Sex: Male
  Weight: 84 kg

DRUGS (10)
  1. NECITUMUMAB (11F8) (LY3012211) [Suspect]
     Indication: NON-SMALL CELL LUNG CANCER STAGE IV
     Dosage: 800 MG, OTHER
     Dates: start: 20101230
  2. LOSARTIC [Concomitant]
  3. ISOPTIN /GFR/ [Concomitant]
  4. ZALDIAR [Concomitant]
     Dosage: UNK, AS NEEDED
  5. CISPLATIN [Suspect]
     Indication: NON-SMALL CELL LUNG CANCER STAGE IV
     Dosage: 150 MG, OTHER
     Dates: start: 20101230
  6. ATROVENT [Concomitant]
  7. GEMCITABINE HCL [Suspect]
     Indication: NON-SMALL CELL LUNG CANCER STAGE IV
     Dosage: 2500 MG, OTHER
     Dates: start: 20101230
  8. TRANDOL [Concomitant]
  9. PANTOPRAZOLE [Concomitant]
     Dosage: 20 MG, UNK
  10. TRENTAL [Concomitant]

REACTIONS (2)
  - RESPIRATORY ARREST [None]
  - BRAIN OEDEMA [None]
